FAERS Safety Report 7600418-X (Version None)
Quarter: 2011Q3

REPORT INFORMATION
  Report Type: 
  Country: None (occurrence: None)
  Receive Date: 20110711
  Receipt Date: 20110627
  Transmission Date: 20111222
  Serious: Yes (Other)
  Sender: FDA-Public Use
  Company Number: US-AMGEN-USASP2011032646

PATIENT
  Age: 55 Year
  Sex: Female

DRUGS (1)
  1. ENBREL [Suspect]
     Indication: RHEUMATOID ARTHRITIS
     Dosage: 50 MG, QWK
     Dates: start: 20110610, end: 20110624

REACTIONS (5)
  - INJECTION SITE REACTION [None]
  - INJECTION SITE DISCOLOURATION [None]
  - VISION BLURRED [None]
  - HEADACHE [None]
  - INJECTION SITE ERYTHEMA [None]
